FAERS Safety Report 4613437-2 (Version None)
Quarter: 2005Q1

REPORT INFORMATION
  Report Type: 
  Country: None (occurrence: None)
  Receive Date: 20050317
  Receipt Date: 20050317
  Transmission Date: 20050727
  Serious: Yes (Other)
  Sender: FDA-Public Use
  Company Number: None

PATIENT
  Age: 53 Year
  Sex: Female

DRUGS (1)
  1. ZYBAN [Suspect]
     Indication: SMOKING CESSATION THERAPY
     Dosage: 150 G  1 PO DAILY  X 3 DAYS THEN 1 PO BID
     Route: 048

REACTIONS (2)
  - ABNORMAL DREAMS [None]
  - INSOMNIA [None]
